FAERS Safety Report 4894413-1 (Version None)
Quarter: 2006Q1

REPORT INFORMATION
  Report Type: 
  Country: None (occurrence: None)
  Receive Date: 20060127
  Receipt Date: 20060123
  Transmission Date: 20060701
  Serious: Yes (Hospitalization)
  Sender: FDA-Public Use
  Company Number: US-GILEAD-2006-0009142

PATIENT
  Sex: Male

DRUGS (8)
  1. HEPSERA [Suspect]
     Indication: HEPATITIS B
     Route: 048
     Dates: start: 20050810, end: 20060119
  2. EPOGEN [Concomitant]
  3. PREVACID [Concomitant]
  4. LASIX [Concomitant]
  5. ALDACTONE [Concomitant]
  6. M.V.I. [Concomitant]
  7. FERROUS SULFATE TAB [Concomitant]
  8. NOROXIN [Concomitant]

REACTIONS (6)
  - ANAEMIA [None]
  - ATRIAL FIBRILLATION [None]
  - BLOOD GLUCOSE INCREASED [None]
  - CARDIOMYOPATHY [None]
  - DEPRESSION [None]
  - RENAL FAILURE [None]
